FAERS Safety Report 10830671 (Version 7)
Quarter: 2015Q4

REPORT INFORMATION
  Report Type: Report from Study
  Country: CA (occurrence: CA)
  Receive Date: 20150219
  Receipt Date: 20151015
  Transmission Date: 20160304
  Serious: Yes (Hospitalization, Other)
  Sender: FDA-Public Use
  Company Number: CA-ROCHE-1455493

PATIENT
  Age: 59 Year
  Sex: Female
  Weight: 56.5 kg

DRUGS (7)
  1. KADCYLA [Suspect]
     Active Substance: ADO-TRASTUZUMAB EMTANSINE
     Route: 042
  2. XARELTO [Concomitant]
     Active Substance: RIVAROXABAN
  3. PERJETA [Suspect]
     Active Substance: PERTUZUMAB
     Indication: PRODUCT USED FOR UNKNOWN INDICATION
     Route: 065
  4. APO-TRAMADOL/ACET [Concomitant]
     Active Substance: ACETAMINOPHEN\TRAMADOL HYDROCHLORIDE
  5. KADCYLA [Suspect]
     Active Substance: ADO-TRASTUZUMAB EMTANSINE
     Route: 042
  6. KADCYLA [Suspect]
     Active Substance: ADO-TRASTUZUMAB EMTANSINE
     Indication: HER-2 POSITIVE BREAST CANCER
     Route: 042
     Dates: start: 20140918, end: 20150910
  7. HERCEPTIN [Suspect]
     Active Substance: TRASTUZUMAB
     Indication: PRODUCT USED FOR UNKNOWN INDICATION
     Route: 065

REACTIONS (11)
  - Haemoglobin decreased [Unknown]
  - Weight decreased [Unknown]
  - Vaginal ulceration [Unknown]
  - Infection [Unknown]
  - Pancreatitis [Unknown]
  - Epistaxis [Unknown]
  - Platelet count decreased [Unknown]
  - Tumour haemorrhage [Unknown]
  - Malignant neoplasm progression [Unknown]
  - Cystitis [Unknown]
  - Malaise [Unknown]

NARRATIVE: CASE EVENT DATE: 2015
